FAERS Safety Report 9578507 (Version 1)
Quarter: 2013Q4

REPORT INFORMATION
  Report Type: Spontaneous
  Country: US (occurrence: US)
  Receive Date: 20131001
  Receipt Date: 20131001
  Transmission Date: 20140711
  Serious: No
  Sender: FDA-Public Use
  Company Number: US-AMGEN-USASP2013013195

PATIENT
  Sex: Female
  Weight: 81.63 kg

DRUGS (16)
  1. ENBREL [Suspect]
     Indication: RHEUMATOID ARTHRITIS
     Dosage: 50 MG, QWK
     Route: 058
  2. CALCIUM 500+D [Concomitant]
     Dosage: UNK
  3. FISH OIL [Concomitant]
     Dosage: UNK
  4. FOLIC ACID [Concomitant]
     Dosage: UNK
  5. TOPROL [Concomitant]
     Dosage: 200 MG, UNK
  6. FLEXERIL                           /00428402/ [Concomitant]
     Dosage: 10 MG, UNK
  7. TRENTAL [Concomitant]
     Dosage: 400 MG, UNK
  8. SULINDAC [Concomitant]
     Dosage: 200 MG, UNK
  9. NASACORT AQ [Concomitant]
     Dosage: 55 MUG, UNK
  10. METHOTREXATE [Concomitant]
     Dosage: 2.5 MG, UNK
  11. ASPIRE [Concomitant]
     Dosage: 81 MG, UNK
  12. VITAMIN D                          /00107901/ [Concomitant]
     Dosage: 400 IU, UNK
  13. ISOSORB MONO [Concomitant]
     Dosage: 120 MG, UNK
  14. NITROLINGUAL-PUMPSPRAY [Concomitant]
     Dosage: UNK
  15. LISINOPRIL [Concomitant]
     Dosage: 40 MG, UNK
  16. ULTRAM                             /00599202/ [Concomitant]
     Dosage: 200 MG, UNK

REACTIONS (2)
  - Pyrexia [Unknown]
  - Malaise [Unknown]
